FAERS Safety Report 4949979-X (Version None)
Quarter: 2006Q1

REPORT INFORMATION
  Report Type: 
  Country: None (occurrence: None)
  Receive Date: 20060315
  Receipt Date: 20060223
  Transmission Date: 20060701
  Serious: Yes (Other)
  Sender: FDA-Public Use
  Company Number: US200602004830

PATIENT
  Age: 65 Year

DRUGS (1)
  1. CYMBALTA [Suspect]

REACTIONS (1)
  - RENAL FAILURE ACUTE [None]
